FAERS Safety Report 13178858 (Version 2)
Quarter: 2017Q1

REPORT INFORMATION
  Report Type: Spontaneous
  Country: US (occurrence: US)
  Receive Date: 20170202
  Receipt Date: 20170301
  Transmission Date: 20170428
  Serious: No
  Sender: FDA-Public Use
  Company Number: US-ASTRAZENECA-2017SE10080

PATIENT
  Age: 780 Month
  Sex: Female
  Weight: 74.8 kg

DRUGS (3)
  1. PULMICORT FLEXHALER [Suspect]
     Active Substance: BUDESONIDE
     Indication: ASTHMA
     Route: 055
     Dates: start: 201701
  2. MULTIVITAMIN [Concomitant]
     Active Substance: VITAMINS
     Route: 048
  3. ESTROGENS [Concomitant]
     Active Substance: ESTROGENS
     Indication: SUPPLEMENTATION THERAPY
     Route: 061
     Dates: start: 2014

REACTIONS (8)
  - Cough [Unknown]
  - Insomnia [Unknown]
  - Intentional device misuse [Unknown]
  - Off label use [Unknown]
  - Drug dose omission [Unknown]
  - Feeling abnormal [Unknown]
  - Device malfunction [Unknown]
  - Device ineffective [Unknown]

NARRATIVE: CASE EVENT DATE: 201701
